FAERS Safety Report 6056504-1 (Version None)
Quarter: 2009Q1

REPORT INFORMATION
  Report Type: 
  Country: None (occurrence: None)
  Receive Date: 20090126
  Receipt Date: 20090107
  Transmission Date: 20090719
  Serious: Yes (Death)
  Sender: FDA-Public Use
  Company Number: B0553755A

PATIENT
  Age: 34 Year
  Sex: Male

DRUGS (4)
  1. ROSIGLITAZONE MALEATE [Suspect]
     Dosage: ORAL
     Route: 048
  2. COCAINE (FORMULATION UNKNOWN) (COCAINE) [Suspect]
     Dosage: ORAL
     Route: 048
  3. LITHIUM CARBONATE [Suspect]
     Dosage: ORAL
     Route: 048
  4. CLONAZEPAM [Suspect]
     Dosage: ORAL
     Route: 048

REACTIONS (1)
  - DEATH [None]
